FAERS Safety Report 8772728 (Version 1)
Quarter: 2012Q4

REPORT INFORMATION
  Report Type: 
  Country: GB (occurrence: GB)
  Receive Date: 20120907
  Receipt Date: 20120907
  Transmission Date: 20130627
  Serious: Yes (Other)
  Sender: FDA-Public Use
  Company Number: GB-ROCHE-1092483

PATIENT
  Age: 63 Year
  Sex: Female
  Weight: 70.3 kg

DRUGS (11)
  1. ROACTEMRA [Suspect]
     Indication: RHEUMATOID ARTHRITIS
     Route: 042
     Dates: start: 20120620, end: 20120626
  2. ATORVASTATIN [Concomitant]
     Route: 048
  3. MTX [Concomitant]
     Indication: RHEUMATOID ARTHRITIS
     Route: 065
     Dates: start: 20060213
  4. FOLIC ACID [Concomitant]
     Route: 048
     Dates: start: 20060213
  5. ATENOLOL [Concomitant]
     Indication: HYPERTENSION
     Route: 048
  6. NICORANDIL [Concomitant]
  7. RAMIPRIL [Concomitant]
  8. SITAGLIPTIN PHOSPHATE [Concomitant]
  9. GLICLAZIDE [Concomitant]
  10. PREGABALIN [Concomitant]
     Route: 065
  11. PIOGLITAZONE [Concomitant]

REACTIONS (8)
  - Headache [Not Recovered/Not Resolved]
  - Dizziness [Not Recovered/Not Resolved]
  - Fatigue [Not Recovered/Not Resolved]
  - Feeling abnormal [Not Recovered/Not Resolved]
  - Dizziness [Not Recovered/Not Resolved]
  - Vision blurred [Not Recovered/Not Resolved]
  - Eye discharge [Not Recovered/Not Resolved]
  - Infusion site rash [Not Recovered/Not Resolved]
